FAERS Safety Report 23668448 (Version 1)
Quarter: 2024Q1

REPORT INFORMATION
  Report Type: Spontaneous
  Country: US (occurrence: US)
  Receive Date: 20240325
  Receipt Date: 20240325
  Transmission Date: 20240410
  Serious: Yes (Disabling, Other)
  Sender: FDA-Public Use
  Company Number: US-PFIZER INC-202400018311.

PATIENT

DRUGS (25)
  1. SIMVASTATIN [Interacting]
     Active Substance: SIMVASTATIN
     Indication: Hypercholesterolaemia
     Dosage: 20 MILLIGRAM (1/2 TAB AT NIGHT TUESDAY,THURSDAY,SATURDAY AND SUNDAY)
  2. SIMVASTATIN [Interacting]
     Active Substance: SIMVASTATIN
     Dosage: 1/2 TABLET AT A NIGHT ON MONDAY WEDNESDAY AND FRIDAY
  3. SIMVASTATIN [Interacting]
     Active Substance: SIMVASTATIN
     Dosage: 20 MILLIGRAM REDUCED TO 10 MG
     Dates: start: 20201220
  4. SIMVASTATIN [Interacting]
     Active Substance: SIMVASTATIN
     Dosage: 40 MILLIGRAM REDUCED TO 20 MG
  5. AMLODIPINE BESYLATE [Interacting]
     Active Substance: AMLODIPINE BESYLATE
     Indication: Hypertension
     Dosage: 5 MILLIGRAM, QD (1 TAB BY MOUTH DAILLY)
     Route: 048
  6. PAXLOVID [Suspect]
     Active Substance: NIRMATRELVIR\RITONAVIR
     Indication: COVID-19
     Dosage: DOSE PK, AS DIRECTED (150 (X2)) EUA
     Route: 048
     Dates: start: 20240104
  7. ALENDRONATE SODIUM [Concomitant]
     Active Substance: ALENDRONATE SODIUM
     Indication: Osteopenia
     Dosage: 70 MILLIGRAM, QW (ON THURSDAY) TAKE BEFOE FIRST FOOD BEV-DO NOT LIE DOWN FOR 30 MIN DO NOT LIE DOWN
     Dates: start: 20231127
  8. IMURAN [Concomitant]
     Active Substance: AZATHIOPRINE
     Indication: Uveitis
     Dosage: 50 MILLIGRAM, TID (2 AM,1 PM) (DOSAGE INCREASED FROM 100 MG/DAY TO 150 MG/DAY TO START FROM 16-OCT-2
     Route: 048
     Dates: start: 20231016
  9. BENLYSTA [Concomitant]
     Active Substance: BELIMUMAB
     Indication: Systemic lupus erythematosus
     Dosage: ONCE/MONTH- INFUSED IN-OFFICE WTH LABS OBATAINED BEFORE HAND ONCE/MONTH
     Route: 042
     Dates: start: 20221018
  10. CELECOXIB [Concomitant]
     Active Substance: CELECOXIB
     Indication: Arthralgia
     Dosage: 1 DOSAGE FORM, QD
     Dates: start: 20230629
  11. FAMOTIDINE [Concomitant]
     Active Substance: FAMOTIDINE
     Indication: Oesophagitis
     Dosage: 1 DOSAGE FORM, QD (DAILY)BEDTIME
     Route: 048
     Dates: start: 20210406
  12. GABAPENTIN [Concomitant]
     Active Substance: GABAPENTIN
     Indication: Sciatica
     Dosage: 1 DOSAGE FORM, QD (PM)
     Route: 048
     Dates: start: 2000
  13. HYDROXYCHLOROQUINE [Concomitant]
     Active Substance: HYDROXYCHLOROQUINE
     Indication: Systemic lupus erythematosus
     Dosage: 2 DOSAGE FORM, QD (1 TAB AM/ 1 TAB PM) TAKE WITH FOOD
     Route: 048
     Dates: start: 20201105
  14. KLOR-CON M10 [Concomitant]
     Active Substance: POTASSIUM CHLORIDE
     Indication: Hypertension
     Dosage: 1 DOSAGE FORM, QD (AM)
     Route: 048
  15. METOPROLOL TARTRATE [Concomitant]
     Active Substance: METOPROLOL TARTRATE
     Indication: Hypertension
     Dosage: 1 DOSAGE FORM, QD (AM)
     Route: 048
  16. PREDNISOLONE ACETATE [Concomitant]
     Active Substance: PREDNISOLONE ACETATE
     Indication: Uveitis
     Dosage: 1 DROP BOTH EYES,2X/DAY
     Dates: start: 2002
  17. SERTRALINE HYDROCHLORIDE [Concomitant]
     Active Substance: SERTRALINE HYDROCHLORIDE
     Indication: Menopausal symptoms
     Dosage: 1 DOSAGE FORM, QD (AM)
     Route: 048
     Dates: start: 1998
  18. FISH OIL [Concomitant]
     Active Substance: FISH OIL
     Indication: Routine health maintenance
     Dosage: 1 TABLET MID MORNING
  19. CENTRUM SILVER [ASCORBIC ACID;BETACAROTENE;BIOTIN;CALCIUM;CHROMIUM;COL [Concomitant]
     Indication: Routine health maintenance
     Dosage: 1 DOSAGE FORM, MID MORNING (OVER THE COUNTER)
     Route: 048
  20. NATURE^S BOUNTY HAIR, SKIN + NAILS [Concomitant]
     Indication: Routine health maintenance
     Dosage: 1 DOSAGE FORM, MID MORNING (OVER THE COUNTER DRUG)
  21. GLUCOSAMIN + CHONDROITIN [Concomitant]
     Indication: Routine health maintenance
     Dosage: 1 DOSAGE FORM, MID MORNING (OVER THE COUNTER DRUG)
     Dates: start: 20240201
  22. METHYLPREDNISOLONE [Concomitant]
     Active Substance: METHYLPREDNISOLONE
     Indication: Systemic lupus erythematosus
     Dosage: TAPERED DOSAGE -6 TABS TO 1 TAB (BEGIN DOSAGE AT BEGINNING OF LUPUS FLAIR)/DAY OVER 6 DAYS
     Dates: start: 20220302
  23. TACROLIMUS [Concomitant]
     Active Substance: TACROLIMUS
     Indication: Eczema
     Dosage: APPLY TO AFFECTED AREA TWICE A DAY, AS NEEDED
     Dates: start: 20211116
  24. TRIAMCINOLONE [Concomitant]
     Active Substance: TRIAMCINOLONE
     Indication: Eczema
     Dosage: TWICE DAILY TO ECZEMA UPTO 2 WEEKS PER MONTH AS NEEDED
     Dates: start: 20200521
  25. OMEPRAZOLE DELAYED RELEASE [OMEPRAZOLE] [Concomitant]
     Indication: Gastrooesophageal reflux disease
     Dosage: 1 DOSAGE FORM, QD (AM)
     Route: 048
     Dates: start: 2001

REACTIONS (2)
  - COVID-19 [Recovered/Resolved]
  - Drug interaction [Unknown]

NARRATIVE: CASE EVENT DATE: 20240118
